FAERS Safety Report 8966479 (Version 1)
Quarter: 2012Q4

REPORT INFORMATION
  Report Type: Spontaneous
  Country: GB (occurrence: None)
  Receive Date: 20121206
  Receipt Date: 20121206
  Transmission Date: 20130627
  Serious: Yes (Hospitalization)
  Sender: FDA-Public Use
  Company Number: AUR-APL-2012-05148

PATIENT
  Age: 52 Year
  Sex: Male
  Weight: 142 kg

DRUGS (11)
  1. CITALOPRAM (CITALOPRAM) [Suspect]
     Indication: ANXIETY
     Route: 048
     Dates: start: 20120704, end: 20121115
  2. CITALOPRAM (CITALOPRAM) [Suspect]
     Indication: SLEEP DISTURBANCE
     Route: 048
     Dates: start: 20120704, end: 20121115
  3. ASPIRIN (ACETYLSALICYLIC ACID) [Concomitant]
  4. ATORVASTATIN [Concomitant]
  5. EZETIMIBE [Concomitant]
  6. FELODIPINE [Concomitant]
  7. GLICLAZID (GLICLAZIDE) [Concomitant]
  8. METFORMIN (METFORMIN HYDROCHLORIDE) [Concomitant]
  9. SALBUTAMOL [Concomitant]
  10. SITAGLIPTIN [Concomitant]
  11. TELMISARTAN [Concomitant]

REACTIONS (4)
  - Hyponatraemia [None]
  - Confusional state [None]
  - Lethargy [None]
  - Weight increased [None]
